FAERS Safety Report 8694399 (Version 2)
Quarter: 2012Q4

REPORT INFORMATION
  Report Type: 
  Country: DE (occurrence: DE)
  Receive Date: 20120731
  Receipt Date: 20120906
  Transmission Date: 20130627
  Serious: Yes (Hospitalization, Other)
  Sender: FDA-Public Use
  Company Number: DE-ELI_LILLY_AND_COMPANY-DE201207006606

PATIENT
  Sex: Female

DRUGS (6)
  1. FORSTEO [Suspect]
     Indication: OSTEOPOROSIS
     Dosage: UNK, qd
     Route: 058
     Dates: start: 20111124
  2. MARCUMAR [Concomitant]
  3. DEKRISTOL [Concomitant]
     Dosage: UNK, bid
  4. MORPHINE [Concomitant]
     Dosage: 10 mg, bid
  5. OMEPRAZOL [Concomitant]
  6. HOMEOPATICS NOS [Concomitant]

REACTIONS (10)
  - Retinal detachment [Not Recovered/Not Resolved]
  - Intraocular pressure increased [Unknown]
  - Visual impairment [Unknown]
  - Headache [Not Recovered/Not Resolved]
  - Cardiovascular disorder [Not Recovered/Not Resolved]
  - Blood pressure increased [Not Recovered/Not Resolved]
  - Heart rate increased [Not Recovered/Not Resolved]
  - Eye disorder [Not Recovered/Not Resolved]
  - Prothrombin time [Unknown]
  - Photophobia [Not Recovered/Not Resolved]
